FAERS Safety Report 5094196-9 (Version None)
Quarter: 2006Q3

REPORT INFORMATION
  Report Type: 
  Country: None (occurrence: None)
  Receive Date: 20060831
  Receipt Date: 20060824
  Transmission Date: 20061208
  Serious: Yes (Death, Other)
  Sender: FDA-Public Use
  Company Number: PHEH2006US10937

PATIENT

DRUGS (2)
  1. SUTENT [Concomitant]
  2. ZOMETA [Suspect]
     Dosage: ^GIVEN TWO DOSES^

REACTIONS (2)
  - DISEASE PROGRESSION [None]
  - OSTEONECROSIS [None]
